FAERS Safety Report 13555667 (Version 1)
Quarter: 2017Q2

REPORT INFORMATION
  Report Type: Report from Study
  Country: AU (occurrence: AU)
  Receive Date: 20170517
  Receipt Date: 20170517
  Transmission Date: 20170830
  Serious: Yes (Other)
  Sender: FDA-Public Use
  Company Number: AU-REGENERON PHARMACEUTICALS, INC.-2016-25362

PATIENT

DRUGS (1)
  1. EYLEA [Suspect]
     Active Substance: AFLIBERCEPT
     Indication: NEOVASCULAR AGE-RELATED MACULAR DEGENERATION
     Dosage: 2 MG, Q8WK (LAST INJECTION GIVEN IN NOV/DEC-2016)
     Route: 031
     Dates: start: 20121201

REACTIONS (6)
  - Ophthalmic herpes zoster [Unknown]
  - Dry eye [Unknown]
  - Visual impairment [Unknown]
  - Spinal disorder [Unknown]
  - Sciatica [Unknown]
  - Cataract operation [Unknown]

NARRATIVE: CASE EVENT DATE: 2015
